FAERS Safety Report 8988387 (Version 2)
Quarter: 2013Q1

REPORT INFORMATION
  Report Type: Spontaneous
  Country: FR (occurrence: None)
  Receive Date: 20121218
  Receipt Date: 20130205
  Transmission Date: 20140127
  Serious: Yes (Hospitalization)
  Sender: FDA-Public Use
  Company Number: DSA_61442_2012

PATIENT
  Age: 12 Day
  Sex: Female

DRUGS (2)
  1. FLAGYL [Suspect]
     Indication: CLOSTRIDIAL INFECTION
     Dosage: 37.5 MG IN SLOW INFUSION FOR 30 MINUTES EVERY 12 HOURS INTRAVENOUS (NOT OTHERWISE SPECIFIED)?
     Route: 042
     Dates: start: 20120822, end: 20120823
  2. FLUCANAZOLE [Suspect]
     Indication: CLOSTRIDIAL INFECTION
     Route: 042
     Dates: start: 20120820, end: 20120821

REACTIONS (2)
  - Wrong drug administered [None]
  - Therapeutic response delayed [None]
